FAERS Safety Report 14340999 (Version 2)
Quarter: 2018Q1

REPORT INFORMATION
  Report Type: Spontaneous
  Country: US (occurrence: US)
  Receive Date: 20180102
  Receipt Date: 20180123
  Transmission Date: 20180509
  Serious: No
  Sender: FDA-Public Use
  Company Number: PHEH2017US042224

PATIENT
  Sex: Female

DRUGS (1)
  1. ENOXAPARIN SODIUM. [Suspect]
     Active Substance: ENOXAPARIN SODIUM
     Indication: PRODUCT USED FOR UNKNOWN INDICATION
     Dosage: 1 DF, BID (EVERY 12 HOURS)
     Route: 058

REACTIONS (3)
  - Needle issue [Not Recovered/Not Resolved]
  - Product quality issue [Unknown]
  - Injection site haemorrhage [Not Recovered/Not Resolved]
